FAERS Safety Report 7054729-X (Version None)
Quarter: 2010Q4

REPORT INFORMATION
  Report Type: 
  Country: None (occurrence: None)
  Receive Date: 20101020
  Receipt Date: 20101013
  Transmission Date: 20110411
  Serious: Yes (Other)
  Sender: FDA-Public Use
  Company Number: FR-B.I. PHARMACEUTICALS,INC./RIDGEFIELD-2010-FF-00397FF

PATIENT
  Sex: Female
  Weight: 55 kg

DRUGS (7)
  1. PRAMIPEXOLE DIHYDROCHLORIDE [Suspect]
     Indication: PARKINSON'S DISEASE
     Dosage: 2.1 MG
     Route: 048
     Dates: start: 20070101
  2. PRAMIPEXOLE DIHYDROCHLORIDE [Suspect]
     Dosage: 1.4 MG
     Route: 048
  3. PRAMIPEXOLE DIHYDROCHLORIDE [Suspect]
     Dosage: 1.05 MG
     Route: 048
  4. ARTANE [Suspect]
     Indication: PARKINSON'S DISEASE
  5. SIFROL LP [Suspect]
     Indication: PARKINSON'S DISEASE
     Dosage: 1.05 MG
     Route: 048
  6. PARKINANE [Concomitant]
     Indication: PARKINSON'S DISEASE
     Dosage: 7.5 MG
     Route: 048
  7. DOMPERIDONE [Concomitant]
     Dosage: 1/2 TABLET DAILY
     Route: 048

REACTIONS (9)
  - ADVERSE DRUG REACTION [None]
  - AMNESIA [None]
  - BLOOD PRESSURE DECREASED [None]
  - DAYDREAMING [None]
  - HALLUCINATION [None]
  - HYPERACUSIS [None]
  - INSOMNIA [None]
  - PHOTOPHOBIA [None]
  - SOMNOLENCE [None]
